FAERS Safety Report 7964282-1 (Version None)
Quarter: 2011Q4

REPORT INFORMATION
  Report Type: 
  Country: None (occurrence: None)
  Receive Date: 20111206
  Receipt Date: 20111128
  Transmission Date: 20120403
  Serious: Yes (Life-Threatening, Hospitalization, Other)
  Sender: FDA-Public Use
  Company Number: 2011MA016876

PATIENT
  Age: 51 Year
  Sex: Female
  Weight: 66 kg

DRUGS (3)
  1. SALINE (NO PREF. NAME) [Suspect]
     Indication: DRUG ADMINISTRATION ERROR
     Dosage: 18 ML;X1;SC
     Route: 058
  2. MORPHINE [Suspect]
     Indication: DRUG ADMINISTRATION ERROR
     Dosage: 90 MG;X1;SC
     Route: 058
  3. CLONIDINE HYDROCHLORIDE [Suspect]
     Indication: DRUG ADMINISTRATION ERROR
     Dosage: 18000 MCG;X1;SC
     Route: 058

REACTIONS (22)
  - CARDIAC FAILURE [None]
  - INCORRECT DOSE ADMINISTERED BY DEVICE [None]
  - CONFUSIONAL STATE [None]
  - MYDRIASIS [None]
  - PUPILS UNEQUAL [None]
  - TOXICOLOGIC TEST ABNORMAL [None]
  - DRUG INEFFECTIVE [None]
  - DEVICE FAILURE [None]
  - HYPERHIDROSIS [None]
  - PARALYSIS [None]
  - CARDIOVASCULAR DISORDER [None]
  - RESPIRATORY RATE DECREASED [None]
  - HYPOTENSION [None]
  - ACUTE MYOCARDIAL INFARCTION [None]
  - PULMONARY EMBOLISM [None]
  - LOSS OF CONSCIOUSNESS [None]
  - HYPERTENSION [None]
  - BRADYCARDIA [None]
  - BLOOD PH DECREASED [None]
  - DRUG ADMINISTRATION ERROR [None]
  - OVERDOSE [None]
  - DIZZINESS [None]
